FAERS Safety Report 7137715-0 (Version None)
Quarter: 2010Q4

REPORT INFORMATION
  Report Type: 
  Country: None (occurrence: None)
  Receive Date: 20101103
  Receipt Date: 20100802
  Transmission Date: 20110411
  Serious: Yes (Other)
  Sender: FDA-Public Use
  Company Number: 2010S1000765

PATIENT
  Age: 63 Year
  Sex: Female
  Weight: 100 kg

DRUGS (9)
  1. CUBICIN [Suspect]
     Indication: STAPHYLOCOCCAL BACTERAEMIA
     Dosage: 6 MG/KG; Q24H; IV
     Route: 042
     Dates: start: 20100618, end: 20100628
  2. DICLOFENAC SODIUM [Concomitant]
  3. CEFUROXIME [Concomitant]
  4. HMG COA REDUCTASE INHIBITORS [Concomitant]
  5. ROSUVASTATIN [Concomitant]
  6. LOSARTAN [Concomitant]
  7. ASPIRIN [Concomitant]
  8. OMEPRAZOLE [Concomitant]
  9. TRAMADOL [Concomitant]

REACTIONS (1)
  - RHABDOMYOLYSIS [None]
